FAERS Safety Report 7284324-9 (Version None)
Quarter: 2011Q1

REPORT INFORMATION
  Report Type: 
  Country: None (occurrence: None)
  Receive Date: 20110209
  Receipt Date: 20110131
  Transmission Date: 20110831
  Serious: Yes (Hospitalization, Other)
  Sender: FDA-Public Use
  Company Number: US-ASTRAZENECA-2010SE57907

PATIENT
  Age: 57 Year
  Sex: Female

DRUGS (2)
  1. OMEPRAZOLE [Suspect]
     Route: 048
  2. NEXIUM [Suspect]
     Route: 048

REACTIONS (14)
  - HYPOKINESIA [None]
  - ABDOMINAL DISCOMFORT [None]
  - HAEMOPTYSIS [None]
  - DRUG DOSE OMISSION [None]
  - LUNG NEOPLASM MALIGNANT [None]
  - TOOTH ABSCESS [None]
  - BRAIN OPERATION [None]
  - OESOPHAGEAL CARCINOMA [None]
  - NEOPLASM MALIGNANT [None]
  - BONE NEOPLASM MALIGNANT [None]
  - TOOTH DISORDER [None]
  - ENDOSCOPY [None]
  - BRONCHITIS CHRONIC [None]
  - CATARACT [None]
